FAERS Safety Report 8046195-2 (Version None)
Quarter: 2012Q1

REPORT INFORMATION
  Report Type: 
  Country: None (occurrence: None)
  Receive Date: 20120113
  Receipt Date: 20120113
  Transmission Date: 20120608
  Serious: No
  Sender: FDA-Public Use
  Company Number: None

PATIENT
  Sex: Female
  Weight: 77.2 kg

DRUGS (6)
  1. CYCLOPHOSPHAMIDE [Suspect]
     Dosage: 2060 MG
  2. PREDNISONE TAB [Suspect]
     Dosage: 50 MG
  3. RITUXIMAB (MOAB C2B8 ANTI CD20, CHIMERIC) [Suspect]
     Dosage: 720 MG
  4. DOXORUBICIN HCL [Suspect]
     Dosage: 80 MG
  5. ETOPOSIDE [Suspect]
     Dosage: 384 MG
  6. VINCRISTINE SULFATE [Suspect]
     Dosage: 2.8 MG

REACTIONS (8)
  - MUCOSAL INFECTION [None]
  - STAPHYLOCOCCAL SEPSIS [None]
  - ORAL CANDIDIASIS [None]
  - PLATELET COUNT ABNORMAL [None]
  - FEBRILE NEUTROPENIA [None]
  - URINARY TRACT INFECTION BACTERIAL [None]
  - ANAEMIA [None]
  - KLEBSIELLA TEST POSITIVE [None]
